FAERS Safety Report 7101927-2 (Version None)
Quarter: 2010Q4

REPORT INFORMATION
  Report Type: 
  Country: None (occurrence: None)
  Receive Date: 20101115
  Receipt Date: 20101108
  Transmission Date: 20110411
  Serious: Yes (Other)
  Sender: FDA-Public Use
  Company Number: BR-PFIZER INC-2010142272

PATIENT
  Age: 43 Year
  Sex: Male
  Weight: 84 kg

DRUGS (7)
  1. XALATAN [Suspect]
     Indication: GLAUCOMA
     Dosage: LATANOPROST 3UG/TIMOLOL MALEATE 300UG,1 DROP IN EACH EYE PER DAY
     Route: 047
     Dates: start: 20100101
  2. XALATAN [Suspect]
     Indication: GLAUCOMA
     Dosage: 3 UG, 1X/DAY, 1 DROP IN EACH EYE
     Route: 047
     Dates: start: 20100901
  3. TIMOLOL [Concomitant]
     Dosage: UNK
  4. DORZOLAMIDE [Concomitant]
     Dosage: UNK
  5. INSULIN [Concomitant]
     Indication: DIABETES MELLITUS
     Dosage: UNK
  6. LOSARTAN POTASSIUM [Concomitant]
     Indication: HYPERTENSION
     Dosage: UNK
  7. ASPIRIN [Concomitant]
     Indication: ANTICOAGULANT THERAPY
     Dosage: UNK

REACTIONS (4)
  - DRUG DISPENSING ERROR [None]
  - DRUG NAME CONFUSION [None]
  - VISUAL ACUITY REDUCED [None]
  - WRONG DRUG ADMINISTERED [None]
